FAERS Safety Report 19662722 (Version 2)
Quarter: 2021Q4

REPORT INFORMATION
  Report Type: Spontaneous
  Country: US (occurrence: US)
  Receive Date: 20210805
  Receipt Date: 20211208
  Transmission Date: 20220304
  Serious: No
  Sender: FDA-Public Use
  Company Number: US-BEH-2021134630

PATIENT
  Age: 18 Year
  Sex: Male

DRUGS (1)
  1. HIZENTRA [Suspect]
     Active Substance: HUMAN IMMUNOGLOBULIN G
     Indication: Hypogammaglobulinaemia
     Dosage: 20 GRAM, QOW
     Route: 058
     Dates: start: 202107

REACTIONS (3)
  - Infection [Unknown]
  - Ill-defined disorder [Unknown]
  - Influenza [Unknown]

NARRATIVE: CASE EVENT DATE: 20211101
